FAERS Safety Report 5334525-1 (Version None)
Quarter: 2007Q2

REPORT INFORMATION
  Report Type: 
  Country: None (occurrence: None)
  Receive Date: 20070525
  Receipt Date: 20070517
  Transmission Date: 20071010
  Serious: Yes (Hospitalization)
  Sender: FDA-Public Use
  Company Number: US-BAYER-200711551BWH

PATIENT
  Age: 72 Year
  Sex: Male

DRUGS (3)
  1. SORAFENIB [Suspect]
     Indication: NON-SMALL CELL LUNG CANCER
     Dosage: TOTAL DAILY DOSE: 800 MG  UNIT DOSE: 200 MG
     Route: 048
     Dates: start: 20070126, end: 20070101
  2. SORAFENIB [Suspect]
     Dosage: TOTAL DAILY DOSE: 800 MG  UNIT DOSE: 200 MG
     Route: 048
     Dates: start: 20070418, end: 20070503
  3. PRILOSEC [Concomitant]

REACTIONS (7)
  - ANOREXIA [None]
  - CARDIOMYOPATHY [None]
  - DYSPNOEA [None]
  - FATIGUE [None]
  - HYPOTHYROIDISM [None]
  - HYPOXIA [None]
  - OEDEMA PERIPHERAL [None]
